FAERS Safety Report 9856832 (Version 1)
Quarter: 2014Q1

REPORT INFORMATION
  Report Type: Spontaneous
  Country: US (occurrence: US)
  Receive Date: 20140130
  Receipt Date: 20140130
  Transmission Date: 20141002
  Serious: Yes (Other)
  Sender: FDA-Public Use
  Company Number: US-009507513-1401USA009791

PATIENT
  Sex: 0

DRUGS (1)
  1. NEXPLANON [Suspect]
     Dosage: UNK
     Route: 059
     Dates: start: 20130923

REACTIONS (2)
  - Discomfort [Unknown]
  - Pruritus [Unknown]
